FAERS Safety Report 5920763-3 (Version None)
Quarter: 2008Q4

REPORT INFORMATION
  Report Type: 
  Country: None (occurrence: None)
  Receive Date: 20081016
  Receipt Date: 20081006
  Transmission Date: 20090506
  Serious: Yes (Hospitalization, Disabling)
  Sender: FDA-Public Use
  Company Number: US-ROCHE-394201

PATIENT
  Sex: Male
  Weight: 75.3 kg

DRUGS (2)
  1. ACCUTANE [Suspect]
     Indication: ACNE
     Route: 048
     Dates: start: 19991125, end: 20000211
  2. ACCUTANE [Suspect]
     Dosage: DOSE INCREASED TO 60 MG IN THE MORNING AND 40 MG AT BEDTIME.
     Route: 048
     Dates: start: 20000211, end: 20000413

REACTIONS (18)
  - ALOPECIA [None]
  - CHEILITIS [None]
  - COLITIS [None]
  - COLITIS ULCERATIVE [None]
  - DEPRESSION [None]
  - EPISTAXIS [None]
  - FOLLICULITIS [None]
  - GASTROINTESTINAL DISORDER [None]
  - HAEMATURIA [None]
  - ILL-DEFINED DISORDER [None]
  - INFLAMMATORY BOWEL DISEASE [None]
  - INTESTINAL HAEMORRHAGE [None]
  - JOINT DISLOCATION [None]
  - JOINT INJURY [None]
  - MULTI-ORGAN DISORDER [None]
  - NEPHROLITHIASIS [None]
  - RECTAL HAEMORRHAGE [None]
  - TENDON RUPTURE [None]
